APPROVED DRUG PRODUCT: TERBINAFINE HYDROCHLORIDE
Active Ingredient: TERBINAFINE HYDROCHLORIDE
Strength: EQ 250MG BASE
Dosage Form/Route: TABLET;ORAL
Application: A076390 | Product #001 | TE Code: AB
Applicant: SENORES PHARMACEUTICALS INC
Approved: Jul 2, 2007 | RLD: No | RS: No | Type: RX